FAERS Safety Report 7712900-5 (Version None)
Quarter: 2011Q3

REPORT INFORMATION
  Report Type: 
  Country: None (occurrence: None)
  Receive Date: 20110826
  Receipt Date: 20110824
  Transmission Date: 20111222
  Serious: Yes (Hospitalization, Other)
  Sender: FDA-Public Use
  Company Number: PHFR2003IE04977

PATIENT
  Sex: Female
  Weight: 88.9 kg

DRUGS (44)
  1. CLOZARIL [Suspect]
     Dosage: 75 MG, UNK
     Route: 048
     Dates: start: 19981111
  2. CLOZARIL [Suspect]
     Dosage: 50 MG/DAY
     Route: 048
     Dates: start: 19990407
  3. VALPROIC ACID [Concomitant]
     Dosage: 1600 MG/DAY
     Dates: start: 20040204
  4. CEFACLOR [Concomitant]
  5. DIAZEPAM [Concomitant]
     Dosage: 10 MG, TID
  6. DULOXETIME HYDROCHLORIDE [Concomitant]
     Dosage: 60 MG, UNK
  7. VALPROATE SODIUM [Concomitant]
     Dosage: 600 MG MANE AND NOCTE AND 200 MG AT 6.00 PM
  8. CLOZARIL [Suspect]
     Dosage: 25 MG MANE + 62.5 MG NOCTE
     Route: 048
     Dates: start: 20040126
  9. CLOZARIL [Suspect]
     Dosage: 112.5 MG/DAY
     Route: 048
  10. CLOZARIL [Suspect]
     Dosage: 12.5 MG MANE + 25 MG NOCTE
     Route: 048
  11. AMISULPRIDE [Suspect]
     Dosage: 100 MG, BID
  12. VALPROIC ACID [Concomitant]
     Indication: CONVULSION
     Dosage: 200 MG, BID
     Dates: start: 19980407, end: 19980411
  13. CYMBALTA [Concomitant]
     Dosage: 120 MG/ADY
     Dates: start: 20100101
  14. CITALOPRAM HYDROBROMIDE [Concomitant]
     Dosage: 40 MG MANE
  15. SOLIAN [Concomitant]
     Dosage: 400 MG, BID
  16. CLOZARIL [Suspect]
     Dosage: 25 MG, BID
     Route: 048
     Dates: start: 20040426, end: 20040501
  17. CLOZARIL [Suspect]
     Dosage: 100 MG/DAY
     Route: 048
  18. VALPROIC ACID [Concomitant]
     Dosage: 1000 MG/DAY
  19. VALPROATE SODIUM [Concomitant]
     Dosage: 200 MG, BID
     Dates: start: 19980407
  20. CLOZARIL [Suspect]
     Dosage: 100 MG, UNK
     Route: 048
  21. VALPROIC ACID [Concomitant]
     Dosage: 600 MG MANE AND NOCTE + 200 MG AT 6 PM
     Dates: start: 20040126
  22. SOLIAN [Concomitant]
     Dosage: 200 MG MANE + 300 MG NOCTE
  23. CLOZARIL [Suspect]
     Dosage: 25 MG, BID
     Route: 048
     Dates: start: 19980302
  24. CLOZARIL [Suspect]
     Dosage: 25 MG MANE + 100 MG NOCTE
  25. CLOZARIL [Suspect]
     Dosage: 12.5 MG MANE + 50 MG NOCTE
     Route: 048
  26. CRESTOR [Concomitant]
     Dosage: 10 MG/DAY
     Dates: start: 20090901
  27. SOLIAN [Concomitant]
     Dosage: 50 MG, BID
  28. RISPERIDONE [Concomitant]
     Dosage: 1 MG NOCTE
  29. RISPERIDONE [Concomitant]
     Dosage: 3 MG NOCTE
  30. CLOZARIL [Suspect]
     Dosage: 12.5 MG MANE + 75 MG NOCTE
     Route: 048
  31. VALPROIC ACID [Concomitant]
     Dosage: 1200 MG/DAY
     Dates: start: 20040126
  32. AKINETON [Concomitant]
     Dosage: 2 MG, TID
  33. CLOZARIL [Suspect]
     Indication: SCHIZOPHRENIA
     Dosage: 175 MG, UNK
     Dates: start: 19971111
  34. CLOZARIL [Suspect]
     Dosage: 250 MG/DAY
     Route: 048
     Dates: start: 19990830
  35. CLOZARIL [Suspect]
     Dosage: 75 MG/DAY
     Route: 048
  36. AMISULPRIDE [Suspect]
     Dosage: 200 MG, BID
  37. VALPROIC ACID [Concomitant]
     Dosage: 800 MG, TID
     Dates: start: 20040308
  38. DIAZEPAM [Concomitant]
     Dosage: 5 MG, TID
  39. DIAZEPAM [Concomitant]
     Dosage: 5 MG, BID
  40. CLOZARIL [Suspect]
     Dosage: 250 MG/DAY
     Route: 048
     Dates: start: 20040107
  41. CLOZARIL [Suspect]
     Dosage: 25 MG MANE + 75 MG NOCTE
     Route: 048
  42. CLOZARIL [Suspect]
     Dosage: UNK
     Dates: start: 20060501
  43. AMISULPRIDE [Suspect]
     Indication: SCHIZOPHRENIA
     Dosage: 50 MG, BID
  44. RISPERIDONE [Concomitant]
     Dosage: 2 MG NOCTE

REACTIONS (24)
  - CONVULSION [None]
  - HYPERHIDROSIS [None]
  - LOWER RESPIRATORY TRACT INFECTION [None]
  - DIARRHOEA [None]
  - CONFUSIONAL STATE [None]
  - NAUSEA [None]
  - ASTHENIA [None]
  - PARANOIA [None]
  - INFLUENZA [None]
  - DYSPHORIA [None]
  - TREMOR [None]
  - DROP ATTACKS [None]
  - FALL [None]
  - LOSS OF CONSCIOUSNESS [None]
  - EAR INFECTION [None]
  - SENSORY DISTURBANCE [None]
  - GAIT DISTURBANCE [None]
  - SCHIZOPHRENIA [None]
  - SLEEP DISORDER [None]
  - DECREASED INTEREST [None]
  - BALANCE DISORDER [None]
  - DEPRESSION [None]
  - DIZZINESS [None]
  - DEPRESSED MOOD [None]
